FAERS Safety Report 9239786 (Version 1)
Quarter: 2013Q2

REPORT INFORMATION
  Report Type: Spontaneous
  Country: BR (occurrence: BR)
  Receive Date: 20130418
  Receipt Date: 20130418
  Transmission Date: 20140414
  Serious: Yes (Hospitalization, Other)
  Sender: FDA-Public Use
  Company Number: BR-ASTRAZENECA-2013SE24101

PATIENT
  Age: 727 Month
  Sex: Female
  Weight: 68.5 kg

DRUGS (4)
  1. ATACAND COMB [Suspect]
     Indication: HYPERTENSION
     Dosage: 16+5 MG DAILY
     Route: 048
     Dates: start: 2010
  2. BRILINTA [Suspect]
     Indication: CORONARY ARTERY OCCLUSION
     Route: 048
     Dates: start: 201304
  3. LIPITOR [Concomitant]
     Indication: BLOOD CHOLESTEROL INCREASED
  4. ASA [Concomitant]

REACTIONS (4)
  - Coronary artery occlusion [Recovered/Resolved]
  - Angina pectoris [Recovered/Resolved]
  - Pain in extremity [Not Recovered/Not Resolved]
  - Cardiac enzymes increased [Recovered/Resolved]
